FAERS Safety Report 8520897-3 (Version None)
Quarter: 2012Q3

REPORT INFORMATION
  Report Type: 
  Country: None (occurrence: None)
  Receive Date: 20120719
  Receipt Date: 20120713
  Transmission Date: 20120928
  Serious: Yes (Hospitalization)
  Sender: FDA-Public Use
  Company Number: US-BAYER-2012-006962

PATIENT
  Age: 20 Year
  Sex: Female
  Weight: 54.422 kg

DRUGS (7)
  1. NORCO [Concomitant]
  2. YASMIN [Suspect]
     Indication: ACNE
     Dosage: UNK
     Dates: start: 20040101, end: 20070101
  3. HYDROCODONE BITARTRATE [Concomitant]
  4. YAZ [Suspect]
     Indication: ACNE
     Dosage: UNK
     Dates: start: 20100101, end: 20110101
  5. DROSPIRENONE AND ETHINYL ESTRADIOL [Suspect]
     Indication: ACNE
     Dosage: UNK
     Dates: start: 20070101, end: 20090101
  6. PROMETHAZINE [Concomitant]
     Indication: NAUSEA
     Dosage: 25 MG, PRN
  7. LEVAQUIN [Concomitant]
     Dosage: 500 MG, DAILY

REACTIONS (7)
  - ANXIETY [None]
  - BILIARY DYSKINESIA [None]
  - PAIN [None]
  - EMOTIONAL DISTRESS [None]
  - INJURY [None]
  - ANHEDONIA [None]
  - GALLBLADDER DISORDER [None]
